FAERS Safety Report 6127243-3 (Version None)
Quarter: 2009Q1

REPORT INFORMATION
  Report Type: 
  Country: None (occurrence: None)
  Receive Date: 20090317
  Receipt Date: 20080923
  Transmission Date: 20090719
  Serious: Yes (Other)
  Sender: FDA-Public Use
  Company Number: ACTA006001

PATIENT
  Age: 69 Year
  Sex: Male

DRUGS (1)
  1. NEOTIGASON (ACITRETIN) [Suspect]
     Indication: PITYRIASIS RUBRA PILARIS
     Dosage: 30 MG MILLIGRAM(S) DOSAGE(S)=1 INTERVAL= 1 DAY(S)
     Dates: start: 20080307, end: 20080601

REACTIONS (3)
  - GYNAECOMASTIA [None]
  - HEPATIC FIBROSIS [None]
  - HEPATITIS [None]
